FAERS Safety Report 4666645-9 (Version None)
Quarter: 2005Q2

REPORT INFORMATION
  Report Type: 
  Country: None (occurrence: None)
  Receive Date: 20050518
  Receipt Date: 20050506
  Transmission Date: 20051028
  Serious: Yes (Hospitalization, Other)
  Sender: FDA-Public Use
  Company Number: KII-2005-0016481

PATIENT
  Sex: Female

DRUGS (1)
  1. MORPHINE SULFATE [Suspect]
     Dosage: SEE TEXT, ORAL
     Route: 048

REACTIONS (5)
  - AREFLEXIA [None]
  - DEPRESSION [None]
  - DRUG SCREEN POSITIVE [None]
  - OVERDOSE [None]
  - SOMNOLENCE [None]
